FAERS Safety Report 5050579-4 (Version None)
Quarter: 2006Q3

REPORT INFORMATION
  Report Type: 
  Country: None (occurrence: None)
  Receive Date: 20060713
  Receipt Date: 20060703
  Transmission Date: 20061208
  Serious: Yes (Other)
  Sender: FDA-Public Use
  Company Number: NL-GLAXOSMITHKLINE-B0430106A

PATIENT
  Age: 64 Year
  Sex: Male

DRUGS (2)
  1. PAROXETINE HCL [Suspect]
     Indication: DRUG USE FOR UNKNOWN INDICATION
     Dosage: 20MG UNKNOWN
     Dates: start: 20060404, end: 20060430
  2. CLORAZEPATE [Concomitant]
     Dosage: 5MG THREE TIMES PER DAY

REACTIONS (1)
  - EYE DISORDER [None]
